FAERS Safety Report 8957085 (Version 1)
Quarter: 2012Q4

REPORT INFORMATION
  Report Type: Report from Study
  Country: GB (occurrence: GB)
  Receive Date: 20121210
  Receipt Date: 20121210
  Transmission Date: 20130627
  Serious: Yes (Hospitalization)
  Sender: FDA-Public Use
  Company Number: GB-ASTRAZENECA-2012SE90430

PATIENT
  Age: 21053 Day
  Sex: Female
  Weight: 58 kg

DRUGS (11)
  1. VANDETANIB [Suspect]
     Indication: PANCREATIC CARCINOMA METASTATIC
     Route: 048
     Dates: start: 20121010, end: 20121031
  2. GEMCITABINE [Suspect]
     Indication: PANCREATIC CARCINOMA METASTATIC
     Route: 042
     Dates: start: 20121009, end: 20121031
  3. PARACETAMOL [Concomitant]
     Indication: PAIN
     Route: 042
     Dates: start: 20121112
  4. KETAMINE [Concomitant]
     Indication: PAIN
     Route: 058
     Dates: start: 20111103
  5. CREON [Concomitant]
     Indication: PANCREATIC ENZYMES DECREASED
     Route: 048
     Dates: start: 20120915
  6. AMITRIPTYLINE [Concomitant]
     Indication: NEURALGIA
     Route: 048
     Dates: start: 20121017
  7. AMLODIPINE [Concomitant]
     Indication: HYPERTENSION
     Route: 048
  8. METOCLOPRAMIDE [Concomitant]
     Indication: NAUSEA
     Route: 058
     Dates: start: 20121031
  9. ANTACID [Concomitant]
     Indication: GASTROOESOPHAGEAL REFLUX DISEASE
     Route: 048
     Dates: start: 20121030
  10. OXETACAINE [Concomitant]
     Indication: GASTROOESOPHAGEAL REFLUX DISEASE
     Route: 048
     Dates: start: 20121030
  11. MIDAZOLAM [Concomitant]
     Indication: PAIN
     Route: 058
     Dates: start: 20121031

REACTIONS (1)
  - Pain [Not Recovered/Not Resolved]
